FAERS Safety Report 7291222-3 (Version None)
Quarter: 2011Q1

REPORT INFORMATION
  Report Type: 
  Country: None (occurrence: None)
  Receive Date: 20110214
  Receipt Date: 20110210
  Transmission Date: 20110831
  Serious: Yes (Hospitalization, Other)
  Sender: FDA-Public Use
  Company Number: AU-ABBOTT-10P-008-0692442-00

PATIENT
  Sex: Female

DRUGS (4)
  1. METHOTREXATE [Suspect]
  2. HUMIRA [Suspect]
     Indication: PSORIASIS
     Dosage: LOADING DOSE AND FIRST DOSE
     Dates: start: 20101101
  3. ISOTRETINOIN [Suspect]
     Indication: ACNE
     Route: 048
  4. METHOTREXATE [Suspect]
     Indication: PSORIASIS
     Dosage: WEEKLY
     Route: 048
     Dates: start: 20101201

REACTIONS (5)
  - MENINGITIS VIRAL [None]
  - MALAISE [None]
  - CONFUSIONAL STATE [None]
  - PSORIASIS [None]
  - LIVER FUNCTION TEST ABNORMAL [None]
